FAERS Safety Report 24200474 (Version 1)
Quarter: 2024Q3

REPORT INFORMATION
  Report Type: Spontaneous
  Country: US (occurrence: None)
  Receive Date: 20240812
  Receipt Date: 20240812
  Transmission Date: 20241017
  Serious: Yes (Hospitalization, Other)
  Sender: ASTRAZENECA
  Company Number: 2024A182194

PATIENT
  Sex: Female

DRUGS (11)
  1. LYNPARZA [Suspect]
     Active Substance: OLAPARIB
     Indication: Breast cancer metastatic
     Dosage: UNK
     Dates: start: 202303, end: 202404
  2. ENHERTU [Suspect]
     Active Substance: FAM-TRASTUZUMAB DERUXTECAN-NXKI
     Indication: Breast cancer metastatic
     Dosage: UNK
     Dates: start: 202404
  3. FULVESTRANT [Suspect]
     Active Substance: FULVESTRANT
     Indication: Breast cancer metastatic
     Dosage: UNK
     Dates: start: 202104, end: 202107
  4. VERZENIO [Suspect]
     Active Substance: ABEMACICLIB
     Indication: Breast cancer metastatic
     Dosage: UNK
     Dates: start: 202104, end: 202107
  5. CAPECITABINE [Suspect]
     Active Substance: CAPECITABINE
     Indication: Breast cancer metastatic
     Dosage: UNK
     Dates: start: 202112, end: 202303
  6. EXEMESTANE [Suspect]
     Active Substance: EXEMESTANE
     Indication: Breast cancer metastatic
     Dosage: UNK
     Dates: start: 202107, end: 202112
  7. EVEROLIMUS [Suspect]
     Active Substance: EVEROLIMUS
     Indication: Breast cancer metastatic
     Dosage: UNK
     Dates: start: 202107, end: 202112
  8. CYTOXAN [Suspect]
     Active Substance: CYCLOPHOSPHAMIDE
     Indication: Breast cancer metastatic
     Dosage: UNK
     Dates: start: 201605
  9. VERSED [Suspect]
     Active Substance: MIDAZOLAM HYDROCHLORIDE
     Indication: Breast cancer metastatic
     Dosage: UNK
  10. TAXOTERE [Suspect]
     Active Substance: DOCETAXEL
     Indication: Breast cancer metastatic
     Dosage: UNK
     Dates: start: 201605
  11. VITAMINS NOS [Concomitant]
     Active Substance: VITAMINS
     Dosage: UNK

REACTIONS (3)
  - Malignant neoplasm progression [Not Recovered/Not Resolved]
  - Skin disorder [Not Recovered/Not Resolved]
  - Onychomadesis [Not Recovered/Not Resolved]
